FAERS Safety Report 12641913 (Version 1)
Quarter: 2016Q3

REPORT INFORMATION
  Report Type: Spontaneous
  Country: US (occurrence: US)
  Receive Date: 20160810
  Receipt Date: 20160810
  Transmission Date: 20161109
  Serious: No
  Sender: FDA-Public Use
  Company Number: US-TARO-2016TAR00269

PATIENT
  Age: 53 Year
  Sex: Female
  Weight: 56.69 kg

DRUGS (1)
  1. CLOBETASOL PROPIONATE CREAM USP 0.05% [Suspect]
     Active Substance: CLOBETASOL PROPIONATE
     Indication: RASH
     Dosage: UNK UNK, 2X/DAY
     Route: 061
     Dates: start: 20160303, end: 20160313

REACTIONS (2)
  - Drug ineffective [Not Recovered/Not Resolved]
  - Application site irritation [Recovered/Resolved]

NARRATIVE: CASE EVENT DATE: 20160303
